FAERS Safety Report 19157142 (Version 3)
Quarter: 2021Q2

REPORT INFORMATION
  Report Type: Report from Study
  Country: None (occurrence: BG)
  Receive Date: 20210420
  Receipt Date: 20210607
  Transmission Date: 20210717
  Serious: Yes (Death, Hospitalization)
  Sender: FDA-Public Use
  Company Number: BG-ABBVIE-21K-022-3862495-00

PATIENT
  Sex: Male

DRUGS (4)
  1. ASTRAZENECA COVID?19 VACCINE [Concomitant]
     Active Substance: AZD-1222
     Indication: COVID-19 IMMUNISATION
     Dosage: ASTRA ZENECA
     Route: 030
     Dates: start: 20210318, end: 20210318
  2. LEVODOPA/CARBIDOPA [Concomitant]
     Active Substance: CARBIDOPA\LEVODOPA
     Indication: PRODUCT USED FOR UNKNOWN INDICATION
  3. DUODOPA [Suspect]
     Active Substance: CARBIDOPA\LEVODOPA
     Route: 050
     Dates: start: 2021
  4. DUODOPA [Suspect]
     Active Substance: CARBIDOPA\LEVODOPA
     Indication: PARKINSON^S DISEASE
     Dosage: MD?10 ML CR?3,6 ML/H ED?1 ML
     Route: 050
     Dates: start: 20160718

REACTIONS (7)
  - Pneumonitis [Unknown]
  - Speech disorder [Unknown]
  - Depression [Unknown]
  - COVID-19 [Recovered/Resolved with Sequelae]
  - Death [Fatal]
  - Deformity [Unknown]
  - Mobility decreased [Unknown]

NARRATIVE: CASE EVENT DATE: 2021
